FAERS Safety Report 15276520 (Version 5)
Quarter: 2019Q2

REPORT INFORMATION
  Report Type: Report from Study
  Country: US (occurrence: US)
  Receive Date: 20180814
  Receipt Date: 20190411
  Transmission Date: 20190711
  Serious: Yes (Hospitalization, Other)
  Sender: FDA-Public Use
  Company Number: US-IPSEN BIOPHARMACEUTICALS, INC.-2018-10649

PATIENT
  Age: 15 Year
  Sex: Male
  Weight: 47.2 kg

DRUGS (3)
  1. DYSPORT [Suspect]
     Active Substance: ABOBOTULINUMTOXINA
     Indication: MUSCLE SPASTICITY
     Dosage: NOT REPORTED
     Route: 065
     Dates: start: 20180302, end: 20180302
  2. DYSPORT [Suspect]
     Active Substance: ABOBOTULINUMTOXINA
     Indication: OFF LABEL USE
  3. DYSPORT [Suspect]
     Active Substance: ABOBOTULINUMTOXINA
     Indication: MUSCLE SPASTICITY

REACTIONS (11)
  - Epiglottitis obstructive [Unknown]
  - Decubitus ulcer [Unknown]
  - Pneumonia [Recovered/Resolved]
  - Seborrhoeic dermatitis [Unknown]
  - Injury [Unknown]
  - CSF shunt operation [Unknown]
  - Constipation [Unknown]
  - Upper-airway cough syndrome [Unknown]
  - Bladder dysfunction [Unknown]
  - Saliva altered [Unknown]
  - Off label use [Unknown]

NARRATIVE: CASE EVENT DATE: 2018
